FAERS Safety Report 15923625 (Version 1)
Quarter: 2019Q1

REPORT INFORMATION
  Report Type: Report from Study
  Country: US (occurrence: US)
  Receive Date: 20190206
  Receipt Date: 20190206
  Transmission Date: 20190417
  Serious: Yes (Hospitalization, Other)
  Sender: FDA-Public Use
  Company Number: US-ROCHE-2253498

PATIENT
  Age: 65 Year
  Sex: Female
  Weight: 76.6 kg

DRUGS (3)
  1. BEVACIZUMAB. [Suspect]
     Active Substance: BEVACIZUMAB
     Indication: MALIGNANT PERITONEAL NEOPLASM
     Dosage: LAST DOSE PRIOR TO EVENT ONSET ON 12/APR/2018 (800 MG) CYCLE 4 DAY 1
     Route: 042
     Dates: start: 20180111
  2. ATEZOLIZUMAB. [Suspect]
     Active Substance: ATEZOLIZUMAB
     Indication: MALIGNANT PERITONEAL NEOPLASM
     Dosage: LAST DOSE PRIOR TO EVENT ONSET ON 12/APR/2018 (800 MG) CYCLE 4 DAY 1
     Route: 042
     Dates: start: 20180111
  3. PEGYLATED LIPOSOMAL DOXORUBICIN HYDROCHLORIDE [Suspect]
     Active Substance: DOXORUBICIN HYDROCHLORIDE
     Indication: MALIGNANT PERITONEAL NEOPLASM
     Dosage: LAST DOSE PRIOR TO EVENT ONSET ON 12/APR/2018 (73 MG) CYCLE 4 DAY 1
     Route: 042
     Dates: start: 20180111

REACTIONS (3)
  - Pyrexia [Recovered/Resolved]
  - Lung infection [Unknown]
  - Encephalitis autoimmune [Unknown]

NARRATIVE: CASE EVENT DATE: 20180510
